FAERS Safety Report 4367798-2 (Version None)
Quarter: 2004Q2

REPORT INFORMATION
  Report Type: 
  Country: None (occurrence: None)
  Receive Date: 20040526
  Receipt Date: 20040427
  Transmission Date: 20050107
  Serious: Yes (Hospitalization)
  Sender: FDA-Public Use
  Company Number: USA040361307

PATIENT
  Age: 8 Year
  Sex: Female
  Weight: 44 kg

DRUGS (6)
  1. ZYPREXA [Suspect]
     Indication: AFFECTIVE DISORDER
     Dosage: 5 MG/2 DAY
     Dates: start: 20021201
  2. ZYPREXA [Suspect]
     Indication: BIPOLAR DISORDER
     Dosage: 5 MG/2 DAY
     Dates: start: 20021201
  3. STRATTERA [Suspect]
     Indication: ATTENTION DEFICIT/HYPERACTIVITY DISORDER
     Dosage: 25 MG
     Dates: start: 20040304
  4. DEPAKOTE [Concomitant]
  5. CELEXA [Concomitant]
  6. RITALIN [Concomitant]

REACTIONS (7)
  - AGGRESSION [None]
  - HALLUCINATIONS, MIXED [None]
  - HUNGER [None]
  - INTENTIONAL SELF-INJURY [None]
  - PSYCHOMOTOR HYPERACTIVITY [None]
  - SUICIDAL IDEATION [None]
  - WEIGHT INCREASED [None]
